FAERS Safety Report 14897255 (Version 1)
Quarter: 2018Q2

REPORT INFORMATION
  Report Type: Spontaneous
  Country: US (occurrence: US)
  Receive Date: 20180515
  Receipt Date: 20180515
  Transmission Date: 20180711
  Serious: No
  Sender: FDA-Public Use
  Company Number: US-GLAXOSMITHKLINE-US2018082829

PATIENT
  Sex: Female

DRUGS (7)
  1. CYMBALTA [Concomitant]
     Active Substance: DULOXETINE HYDROCHLORIDE
  2. LOSARTAN. [Concomitant]
     Active Substance: LOSARTAN
  3. TOPAMAX [Concomitant]
     Active Substance: TOPIRAMATE
  4. SALAGEN [Concomitant]
     Active Substance: PILOCARPINE HYDROCHLORIDE
  5. DEXILANT [Concomitant]
     Active Substance: DEXLANSOPRAZOLE
  6. BENLYSTA [Suspect]
     Active Substance: BELIMUMAB
     Indication: SYSTEMIC LUPUS ERYTHEMATOSUS
     Dosage: UNK, CYC EVERY 4 WEEKS
     Route: 042
     Dates: start: 2016
  7. PLAQUENIL [Concomitant]
     Active Substance: HYDROXYCHLOROQUINE SULFATE

REACTIONS (1)
  - Fatigue [Recovered/Resolved]
